FAERS Safety Report 6414913-2 (Version None)
Quarter: 2009Q4

REPORT INFORMATION
  Report Type: 
  Country: None (occurrence: None)
  Receive Date: 20091026
  Receipt Date: 20090520
  Transmission Date: 20100525
  Serious: No
  Sender: FDA-Public Use
  Company Number: US-ABBOTT-09P-163-0576028-00

PATIENT
  Sex: Female
  Weight: 68.554 kg

DRUGS (5)
  1. LUPRON DEPOT [Suspect]
     Indication: INFERTILITY
     Dosage: 2.8ML VIAL , PT  WAS USING INSULIN NEEDLES AND TAKING 10 UNITS
     Route: 058
     Dates: start: 20070912, end: 20071001
  2. DEXAMETHASONE [Suspect]
     Indication: DRUG USE FOR UNKNOWN INDICATION
     Dates: start: 20070907, end: 20071001
  3. FOLLISTIM [Suspect]
     Indication: DRUG USE FOR UNKNOWN INDICATION
     Dates: start: 20070912, end: 20071001
  4. ZITHROMAX [Concomitant]
     Indication: DRUG USE FOR UNKNOWN INDICATION
     Dates: start: 20070912, end: 20071001
  5. PROGETERONE [Concomitant]
     Indication: DRUG USE FOR UNKNOWN INDICATION
     Dates: start: 20070901, end: 20071001

REACTIONS (6)
  - ABDOMINAL PAIN [None]
  - DYSPNOEA [None]
  - HEADACHE [None]
  - HYPERHIDROSIS [None]
  - HYPERTENSION [None]
  - NAUSEA [None]
